FAERS Safety Report 7955545-4 (Version None)
Quarter: 2011Q4

REPORT INFORMATION
  Report Type: 
  Country: None (occurrence: None)
  Receive Date: 20111202
  Receipt Date: 20111128
  Transmission Date: 20120403
  Serious: Yes (Hospitalization)
  Sender: FDA-Public Use
  Company Number: US-GILEAD-2011-0045652

PATIENT
  Sex: Female

DRUGS (3)
  1. LETAIRIS [Suspect]
     Indication: PULMONARY HYPERTENSION
     Dosage: 10 MG, UNK
     Route: 048
     Dates: start: 20110718
  2. LETAIRIS [Suspect]
     Indication: HEPATIC CIRRHOSIS
  3. ADCIRCA [Concomitant]

REACTIONS (4)
  - FALL [None]
  - BALANCE DISORDER [None]
  - HEAD INJURY [None]
  - DIZZINESS [None]
